FAERS Safety Report 9636661 (Version 2)
Quarter: 2013Q4

REPORT INFORMATION
  Report Type: Report from Study
  Country: GB (occurrence: GB)
  Receive Date: 20131021
  Receipt Date: 20131113
  Transmission Date: 20140711
  Serious: Yes (Hospitalization)
  Sender: FDA-Public Use
  Company Number: GB-ROCHE-1291940

PATIENT
  Age: 82 Year
  Sex: Male

DRUGS (4)
  1. RANIBIZUMAB [Suspect]
     Indication: AGE-RELATED MACULAR DEGENERATION
     Route: 050
     Dates: start: 20111027
  2. RANIBIZUMAB [Suspect]
     Route: 050
     Dates: start: 20130517
  3. RANIBIZUMAB [Suspect]
     Route: 050
     Dates: start: 20130718
  4. BISOPROLOL [Suspect]
     Indication: PRODUCT USED FOR UNKNOWN INDICATION
     Route: 065

REACTIONS (3)
  - Bradycardia [Recovered/Resolved]
  - Sinus arrhythmia [Recovered/Resolved]
  - Atrioventricular block first degree [Recovered/Resolved]
